FAERS Safety Report 5809590-5 (Version None)
Quarter: 2008Q3

REPORT INFORMATION
  Report Type: 
  Country: None (occurrence: None)
  Receive Date: 20080709
  Receipt Date: 20080701
  Transmission Date: 20090109
  Serious: Yes (Other)
  Sender: FDA-Public Use
  Company Number: 2008SP012936

PATIENT
  Age: 57 Year
  Sex: Male

DRUGS (2)
  1. PEGINTERFERON ALFA-2B (S-P) (PEGINTERFERON ALFA-2B) [Suspect]
     Indication: HEPATIC CIRRHOSIS
     Dosage: 1.0 MCG/KG; QW;SC
     Route: 058
     Dates: start: 20071221, end: 20080618
  2. RIBAVIRIN [Suspect]
     Indication: HEPATIC CIRRHOSIS
     Dosage: PO
     Route: 048
     Dates: start: 20071221, end: 20080618

REACTIONS (1)
  - LYMPHOMA [None]
